FAERS Safety Report 6545168-6 (Version None)
Quarter: 2010Q1

REPORT INFORMATION
  Report Type: 
  Country: None (occurrence: None)
  Receive Date: 20100121
  Receipt Date: 20081210
  Transmission Date: 20100710
  Serious: No
  Sender: FDA-Public Use
  Company Number: US-KINGPHARMUSA00001-K200801399

PATIENT
  Sex: Female
  Weight: 72.562 kg

DRUGS (1)
  1. EPIPEN [Suspect]
     Dosage: UNK
     Dates: start: 20081210, end: 20081210

REACTIONS (4)
  - ACCIDENTAL EXPOSURE [None]
  - EXPIRED DRUG ADMINISTERED [None]
  - INJECTION SITE HAEMATOMA [None]
  - INJECTION SITE SWELLING [None]
